FAERS Safety Report 23187506 (Version 3)
Quarter: 2023Q4

REPORT INFORMATION
  Report Type: Report from Study
  Country: MX (occurrence: MX)
  Receive Date: 20231115
  Receipt Date: 20231225
  Transmission Date: 20240109
  Serious: Yes (Other)
  Sender: FDA-Public Use
  Company Number: MX-002147023-NVSC2023MX220905

PATIENT
  Sex: Female

DRUGS (4)
  1. KISQALI [Suspect]
     Active Substance: RIBOCICLIB
     Indication: Breast cancer
     Dosage: UNK
     Route: 048
  2. LETROZOLE [Suspect]
     Active Substance: LETROZOLE
     Indication: Product used for unknown indication
     Dosage: 1 DOSAGE FORM, QD(AT NIGHT)
     Route: 065
  3. METFORMIN [Concomitant]
     Active Substance: METFORMIN HYDROCHLORIDE
     Indication: Product used for unknown indication
     Route: 065
  4. ENALAPRIL [Concomitant]
     Active Substance: ENALAPRIL
     Indication: Product used for unknown indication
     Route: 065

REACTIONS (28)
  - Diabetes mellitus inadequate control [Unknown]
  - Neoplasm malignant [Unknown]
  - Metastases to bone [Unknown]
  - Hidradenitis [Unknown]
  - Neoplasm [Unknown]
  - Decreased immune responsiveness [Unknown]
  - Blood pressure abnormal [Unknown]
  - Poor quality sleep [Unknown]
  - Epigastric discomfort [Unknown]
  - Weight decreased [Unknown]
  - Headache [Unknown]
  - Asthenia [Unknown]
  - Vision blurred [Unknown]
  - Bone pain [Unknown]
  - Eye pain [Unknown]
  - Fatigue [Unknown]
  - Pain in extremity [Unknown]
  - Abdominal discomfort [Unknown]
  - Musculoskeletal chest pain [Unknown]
  - Gait inability [Unknown]
  - Depression [Unknown]
  - Hypertension [Unknown]
  - Abdominal pain upper [Unknown]
  - Insomnia [Unknown]
  - Stress [Unknown]
  - Malaise [Unknown]
  - Tooth deposit [Unknown]
  - Tooth disorder [Unknown]
